FAERS Safety Report 17106375 (Version 2)
Quarter: 2019Q4

REPORT INFORMATION
  Report Type: Spontaneous
  Country: US (occurrence: US)
  Receive Date: 20191203
  Receipt Date: 20191218
  Transmission Date: 20200122
  Serious: No
  Sender: FDA-Public Use
  Company Number: US-BAUSCH-BL-2019-057400

PATIENT
  Age: 80 Year
  Sex: Female

DRUGS (1)
  1. VYZULTA [Suspect]
     Active Substance: LATANOPROSTENE BUNOD
     Indication: GLAUCOMA
     Dosage: STARTED APPROXIMATELY ONE WEEK AGO FROM THE INITIAL REPORT, ONE DROP IN THE LEFT EYE ONCE NIGHTLY
     Route: 047
     Dates: start: 201909

REACTIONS (12)
  - Visual impairment [Unknown]
  - Eye irritation [Unknown]
  - Vision blurred [Unknown]
  - Incorrect dose administered [Unknown]
  - Eye pain [Not Recovered/Not Resolved]
  - Pruritus [Unknown]
  - Pigmentation disorder [Unknown]
  - Sleep disorder [Unknown]
  - Ocular hyperaemia [Unknown]
  - Product container issue [Unknown]
  - Ocular discomfort [Unknown]
  - Dry eye [Unknown]

NARRATIVE: CASE EVENT DATE: 2019
